FAERS Safety Report 8953624 (Version 2)
Quarter: 2012Q4

REPORT INFORMATION
  Report Type: 
  Country: DE (occurrence: DE)
  Receive Date: 20121206
  Receipt Date: 20121212
  Transmission Date: 20130627
  Serious: Yes (Other)
  Sender: FDA-Public Use
  Company Number: DE-ALEXION PHARMACEUTICALS INC.-A201202294

PATIENT
  Age: 11 Year
  Sex: Male

DRUGS (14)
  1. SOLIRIS 300MG [Suspect]
     Indication: HAEMOLYTIC URAEMIC SYNDROME
     Dosage: 1200 mg, q2w
     Route: 042
     Dates: start: 20120525, end: 20121025
  2. SOLIRIS 300MG [Suspect]
     Dosage: 900 mg, q2w
     Route: 042
     Dates: start: 20121109
  3. SOLIRIS 300MG [Suspect]
     Dosage: 900 mg, q2w
     Route: 042
     Dates: start: 20121109
  4. MESALAZINE [Concomitant]
     Indication: COLITIS ULCERATIVE
     Dosage: 1 g x3
     Route: 048
  5. DECORTIN [Concomitant]
     Indication: COLITIS ULCERATIVE
     Dosage: 7.5 mg x1
     Route: 048
     Dates: end: 20121117
  6. AMLODIPIN [Concomitant]
     Indication: HYPERTENSION
     Dosage: 40 mg x2
     Route: 048
  7. HYDROCHLOROTHIAZIDE [Concomitant]
     Indication: HYPERTENSION
     Dosage: 25 mg x1
     Route: 048
  8. RAMIPRIL [Concomitant]
     Indication: HYPERTENSION
     Dosage: 7.5 mg x1
     Route: 048
  9. LOSARTAN [Concomitant]
     Indication: HYPERTENSION
     Dosage: 25 mg x1
     Route: 048
  10. POTASSIUM CHLORIDE SR [Concomitant]
     Indication: HYPOKALAEMIA
     Dosage: 1 capsule x4
     Route: 048
  11. IRON [Concomitant]
     Indication: IRON DEFICIENCY
     Dosage: 50 mg x1
     Route: 048
  12. MAGNESIUM [Concomitant]
     Dosage: 1 tablet x1
     Route: 048
  13. CALCIUM [Concomitant]
     Dosage: 1 tablet x1
     Route: 048
  14. INFLIXIMAB [Concomitant]
     Indication: COLITIS ULCERATIVE
     Dosage: 5 mg/kg Q8W x1
     Route: 042

REACTIONS (3)
  - Diarrhoea haemorrhagic [Not Recovered/Not Resolved]
  - Vomiting [Not Recovered/Not Resolved]
  - Viral infection [Not Recovered/Not Resolved]
